FAERS Safety Report 9781400 (Version 1)
Quarter: 2013Q4

REPORT INFORMATION
  Report Type: Spontaneous
  Country: US (occurrence: US)
  Receive Date: 20131224
  Receipt Date: 20131224
  Transmission Date: 20140711
  Serious: Yes (Other)
  Sender: FDA-Public Use
  Company Number: US-LUNDBECK-DKLU1096277

PATIENT
  Age: 6 Year
  Sex: Female

DRUGS (6)
  1. ONFI [Suspect]
     Indication: CONVULSION
     Route: 048
  2. BANZEL [Concomitant]
     Indication: CONVULSION
  3. KEPPRA [Concomitant]
     Indication: CONVULSION
  4. VIMPAT [Concomitant]
     Indication: CONVULSION
  5. HIGH DOSE STEROIDS [Concomitant]
     Indication: CONVULSION
  6. ZONEGRAN [Concomitant]
     Indication: CONVULSION

REACTIONS (4)
  - Status epilepticus [Recovered/Resolved]
  - Convulsion [Unknown]
  - Atonic seizures [Unknown]
  - Insomnia [Unknown]
